FAERS Safety Report 24766231 (Version 1)
Quarter: 2024Q4

REPORT INFORMATION
  Report Type: Spontaneous
  Country: US (occurrence: US)
  Receive Date: 20241223
  Receipt Date: 20241223
  Transmission Date: 20250115
  Serious: No
  Sender: GLAXOSMITHKLINE
  Company Number: US-GSK-US2024157617

PATIENT
  Age: 63 Year
  Sex: Male

DRUGS (1)
  1. FLONASE [Suspect]
     Active Substance: FLUTICASONE PROPIONATE
     Indication: Nasopharyngitis
     Dosage: UNK, SQUIRTS IN EACH NOSTROL MORNING AND NIGHT
     Dates: start: 20220113

REACTIONS (1)
  - Product use in unapproved indication [Unknown]
